FAERS Safety Report 5127129-7 (Version None)
Quarter: 2006Q4

REPORT INFORMATION
  Report Type: 
  Country: None (occurrence: None)
  Receive Date: 20061013
  Receipt Date: 20061010
  Transmission Date: 20070319
  Serious: Yes (Death)
  Sender: FDA-Public Use
  Company Number: 2006UW19819

PATIENT
  Sex: Male

DRUGS (1)
  1. CASODEX [Suspect]
     Route: 048

REACTIONS (1)
  - DEATH [None]
